FAERS Safety Report 4853638-1 (Version None)
Quarter: 2005Q4

REPORT INFORMATION
  Report Type: 
  Country: None (occurrence: None)
  Receive Date: 20051214
  Receipt Date: 20051031
  Transmission Date: 20060501
  Serious: Yes (Other)
  Sender: FDA-Public Use
  Company Number: 2005AP05649

PATIENT
  Age: 75 Year
  Sex: Male

DRUGS (10)
  1. IRESSA [Suspect]
     Indication: LUNG ADENOCARCINOMA
     Route: 048
     Dates: start: 20051026
  2. DEPAKENE [Concomitant]
     Route: 048
     Dates: start: 20051017
  3. VOLTAREN [Concomitant]
     Route: 048
     Dates: start: 20051017
  4. NEUROVITAN [Concomitant]
     Route: 048
     Dates: start: 20051017
  5. JUZENTAIHOTO [Concomitant]
     Route: 048
     Dates: start: 20051017
  6. TAKEPRON [Concomitant]
     Route: 048
     Dates: start: 20051017
  7. ISODINE GARGLE [Concomitant]
     Dates: start: 20051017
  8. NI [Concomitant]
     Route: 048
     Dates: start: 20051017
  9. CARBOPLATIN [Concomitant]
  10. NAVELBINE [Concomitant]

REACTIONS (1)
  - ACTIVATED PARTIAL THROMBOPLASTIN TIME PROLONGED [None]
